FAERS Safety Report 17632430 (Version 1)
Quarter: 2020Q2

REPORT INFORMATION
  Report Type: Spontaneous
  Country: US (occurrence: US)
  Receive Date: 20200406
  Receipt Date: 20200406
  Transmission Date: 20200713
  Serious: No
  Sender: FDA-Public Use
  Company Number: US-JNJFOC-20200406202

PATIENT
  Sex: Female
  Weight: 103.97 kg

DRUGS (13)
  1. ALBUTEROL                          /00139501/ [Concomitant]
     Active Substance: ALBUTEROL
  2. VITAMINS D3 [Concomitant]
     Dosage: 5000 UNITS
     Route: 048
  3. STELARA [Suspect]
     Active Substance: USTEKINUMAB
  4. FISH OIL [Suspect]
     Active Substance: FISH OIL
     Route: 048
  5. CRESTOR [Concomitant]
     Active Substance: ROSUVASTATIN CALCIUM
     Route: 048
  6. LEVOTHYROXINE. [Concomitant]
     Active Substance: LEVOTHYROXINE
     Dosage: 125 MCG
     Route: 048
  7. STELARA [Suspect]
     Active Substance: USTEKINUMAB
     Indication: PSORIASIS
     Route: 058
     Dates: start: 20191007
  8. CELEXA [Concomitant]
     Active Substance: CITALOPRAM HYDROBROMIDE
     Route: 048
  9. CLINDAMYCIN. [Concomitant]
     Active Substance: CLINDAMYCIN
     Route: 061
  10. LYSINE [Concomitant]
     Active Substance: LYSINE
     Route: 048
  11. MINOCYCLINE [Suspect]
     Active Substance: MINOCYCLINE HYDROCHLORIDE
     Route: 048
  12. METFORMIN [Concomitant]
     Active Substance: METFORMIN HYDROCHLORIDE
     Route: 048
  13. CALCIUM                            /00060701/ [Concomitant]
     Active Substance: CALCIUM
     Route: 048

REACTIONS (2)
  - Hyperhidrosis [Unknown]
  - Hot flush [Unknown]
